FAERS Safety Report 4997032-1 (Version None)
Quarter: 2006Q2

REPORT INFORMATION
  Report Type: 
  Country: None (occurrence: None)
  Receive Date: 20060505
  Receipt Date: 20060505
  Transmission Date: 20061013
  Serious: Yes (Other)
  Sender: FDA-Public Use
  Company Number: None

PATIENT
  Age: 61 Year
  Sex: Female

DRUGS (1)
  1. CEFAZOLIN [Suspect]

REACTIONS (4)
  - BLISTER [None]
  - ERYTHEMA [None]
  - PYREXIA [None]
  - SWELLING [None]
